FAERS Safety Report 10700467 (Version 3)
Quarter: 2015Q1

REPORT INFORMATION
  Report Type: Spontaneous
  Country: JP (occurrence: JP)
  Receive Date: 20150109
  Receipt Date: 20150204
  Transmission Date: 20150721
  Serious: Yes (Life-Threatening, Hospitalization, Other)
  Sender: FDA-Public Use
  Company Number: JP-PFIZER INC-2015006762

PATIENT
  Age: 52 Year
  Sex: Male
  Weight: 104.8 kg

DRUGS (3)
  1. SUTENT [Suspect]
     Active Substance: SUNITINIB MALATE
     Dosage: 25 MG, DAILY
     Route: 048
     Dates: start: 20141002, end: 20141022
  2. SUTENT [Suspect]
     Active Substance: SUNITINIB MALATE
     Dosage: 37.5 MG, DAILY
     Route: 048
     Dates: start: 20141023, end: 20141106
  3. SUTENT [Suspect]
     Active Substance: SUNITINIB MALATE
     Indication: RENAL CELL CARCINOMA
     Dosage: 50 MG DAILY, CYCLIC, TWO-WEEK ADMINISTRATION FOLLOWED BY ONE-WEEK REST
     Route: 048
     Dates: start: 20140718, end: 20140728

REACTIONS (4)
  - Interstitial lung disease [Recovering/Resolving]
  - Interstitial lung disease [Recovered/Resolved]
  - Disease progression [Unknown]
  - Renal cell carcinoma [Unknown]

NARRATIVE: CASE EVENT DATE: 20140728
